FAERS Safety Report 10809724 (Version 1)
Quarter: 2015Q1

REPORT INFORMATION
  Report Type: Spontaneous
  Country: US (occurrence: None)
  Receive Date: 20150212
  Receipt Date: 20150212
  Transmission Date: 20150721
  Serious: No
  Sender: FDA-Public Use
  Company Number: None

PATIENT
  Age: 58 Year
  Sex: Male
  Weight: 118.39 kg

DRUGS (9)
  1. ZOFRAN [Concomitant]
     Active Substance: ONDANSETRON HYDROCHLORIDE
  2. NEXIUM [Concomitant]
     Active Substance: ESOMEPRAZOLE MAGNESIUM
  3. NORVASC [Concomitant]
     Active Substance: AMLODIPINE BESYLATE
  4. KLONIPIN [Concomitant]
     Active Substance: CLONAZEPAM
  5. DOCUSATE [Concomitant]
     Active Substance: DOCUSATE
  6. ZOLOFT [Concomitant]
     Active Substance: SERTRALINE HYDROCHLORIDE
  7. HYDROMORPHONE [Concomitant]
     Active Substance: HYDROMORPHONE
  8. NS [Concomitant]
     Active Substance: SODIUM CHLORIDE
  9. KETOROLAC [Suspect]
     Active Substance: KETOROLAC\KETOROLAC TROMETHAMINE
     Indication: PAIN
     Dosage: DATES OF USE: X1, 30MG, DAILY PRN, OPHTHALMIC
     Route: 047

REACTIONS (2)
  - Swollen tongue [None]
  - Dysarthria [None]

NARRATIVE: CASE EVENT DATE: 20150210
